FAERS Safety Report 24441439 (Version 1)
Quarter: 2024Q4

REPORT INFORMATION
  Report Type: Spontaneous
  Country: PT (occurrence: PT)
  Receive Date: 20241016
  Receipt Date: 20241016
  Transmission Date: 20250115
  Serious: Yes (Other)
  Sender: SAMSUNG BIOEPIS
  Company Number: PT-SAMSUNG BIOEPIS-SB-2024-30660

PATIENT
  Age: 68 Year
  Sex: Female

DRUGS (2)
  1. INFLIXIMAB [Suspect]
     Active Substance: INFLIXIMAB
     Indication: Colitis ulcerative
  2. INFLIXIMAB [Suspect]
     Active Substance: INFLIXIMAB
     Dosage: GIVEN 1 WEEK LATER;

REACTIONS (4)
  - Rectal ulcer [Unknown]
  - Guillain-Barre syndrome [Recovering/Resolving]
  - Therapeutic product effect decreased [Unknown]
  - Therapy non-responder [Unknown]
